FAERS Safety Report 6377675-3 (Version None)
Quarter: 2009Q3

REPORT INFORMATION
  Report Type: 
  Country: None (occurrence: None)
  Receive Date: 20090923
  Receipt Date: 20090923
  Transmission Date: 20100115
  Serious: No
  Sender: FDA-Public Use
  Company Number: None

PATIENT
  Age: 82 Year
  Sex: Male
  Weight: 73.5 kg

DRUGS (2)
  1. TEMSIROLIMUS [Suspect]
     Indication: NEOPLASM MALIGNANT
     Dosage: 25 MG QWEEK IV
     Route: 042
     Dates: start: 20090603
  2. LEVOTHYROXINE SODIUM [Suspect]
     Dosage: 0.025 MG EVERY DAY PO
     Route: 048
     Dates: start: 20090603

REACTIONS (1)
  - PERIORBITAL OEDEMA [None]
